FAERS Safety Report 7497879-6 (Version None)
Quarter: 2011Q2

REPORT INFORMATION
  Report Type: 
  Country: None (occurrence: None)
  Receive Date: 20110524
  Receipt Date: 20110112
  Transmission Date: 20111010
  Serious: Yes (Other)
  Sender: FDA-Public Use
  Company Number: US-BAYER-201029433NA

PATIENT
  Age: 38 Year
  Sex: Female
  Weight: 63.3 kg

DRUGS (5)
  1. YAZ [Suspect]
     Dosage: UNK
     Dates: start: 20081006, end: 20100108
  2. YASMIN [Suspect]
     Indication: CONTRACEPTION
     Dosage: UNK
     Dates: start: 20060522, end: 20070513
  3. YAZ [Suspect]
     Indication: CONTRACEPTION
     Dosage: UNK
     Dates: start: 20070615, end: 20080612
  4. DROSPIRENONE AND ETHINYL ESTRADIOL [Suspect]
     Indication: CONTRACEPTION
     Dosage: UNK
     Dates: start: 20080718, end: 20080815
  5. NAPROXEN (ALEVE) [Concomitant]

REACTIONS (7)
  - BILIARY DYSKINESIA [None]
  - PAIN [None]
  - GALLBLADDER INJURY [None]
  - GALLBLADDER CHOLESTEROLOSIS [None]
  - SCAR [None]
  - EMOTIONAL DISTRESS [None]
  - CHOLECYSTITIS CHRONIC [None]
